FAERS Safety Report 8206338-4 (Version None)
Quarter: 2012Q1

REPORT INFORMATION
  Report Type: 
  Country: None (occurrence: None)
  Receive Date: 20120313
  Receipt Date: 20120305
  Transmission Date: 20120608
  Serious: Yes (Hospitalization)
  Sender: FDA-Public Use
  Company Number: BE-ROCHE-1046989

PATIENT
  Age: 91 Year
  Sex: Female

DRUGS (2)
  1. LUCENTIS [Suspect]
     Route: 050
     Dates: start: 20120220
  2. LUCENTIS [Suspect]
     Indication: AGE-RELATED MACULAR DEGENERATION
     Route: 050

REACTIONS (3)
  - MULTIPLE FRACTURES [None]
  - FALL [None]
  - CEREBROVASCULAR ACCIDENT [None]
